FAERS Safety Report 4477007-1 (Version None)
Quarter: 2004Q4

REPORT INFORMATION
  Report Type: 
  Country: None (occurrence: None)
  Receive Date: 20041018
  Receipt Date: 20040406
  Transmission Date: 20050328
  Serious: Yes (Death, Life-Threatening, Hospitalization)
  Sender: FDA-Public Use
  Company Number: JP-ABBOTT-04P-087-0256168-00

PATIENT
  Sex: Male

DRUGS (14)
  1. ODRIK [Suspect]
     Indication: HYPERTENSION
     Route: 048
     Dates: start: 19980101, end: 20040416
  2. CANDESARTAN CILEXETIL [Suspect]
     Indication: ANGINA PECTORIS
     Route: 048
     Dates: start: 20020426, end: 20040113
  3. CANDESARTAN CILEXETIL [Suspect]
     Indication: HYPERTENSION
  4. CANDESARTAN CILEXETIL [Suspect]
     Indication: CARDIAC FAILURE
  5. DICLOFENAC SODIUM [Suspect]
     Indication: PAIN MANAGEMENT
     Route: 048
     Dates: start: 20031229, end: 20040113
  6. AMLODIPINE BESYLATE [Concomitant]
     Indication: DRUG USE FOR UNKNOWN INDICATION
     Route: 048
     Dates: start: 20020801, end: 20040416
  7. ACETYLSALICYLIC ACID [Concomitant]
     Indication: DRUG USE FOR UNKNOWN INDICATION
     Route: 048
     Dates: start: 20020601, end: 20040416
  8. ISOSORBIDE DINITRATE [Concomitant]
     Indication: DRUG USE FOR UNKNOWN INDICATION
     Route: 048
     Dates: start: 20020601, end: 20040416
  9. SARPOGRELATE HYDROCHLORIDE [Concomitant]
     Indication: DRUG USE FOR UNKNOWN INDICATION
     Route: 048
     Dates: start: 20020601, end: 20040416
  10. CARVEDILOL [Concomitant]
     Indication: DRUG USE FOR UNKNOWN INDICATION
     Route: 048
     Dates: start: 20020601, end: 20040416
  11. FAMOTIDINE [Concomitant]
     Indication: DRUG USE FOR UNKNOWN INDICATION
     Route: 048
     Dates: start: 19980101, end: 20040416
  12. CALCIUM POLYSTYRENE SULFONATE [Concomitant]
     Indication: HYPERKALAEMIA
     Route: 048
     Dates: start: 20020902, end: 20040111
  13. CALCIUM POLYSTYRENE SULFONATE [Concomitant]
     Route: 048
     Dates: start: 20040112, end: 20040417
  14. ALLOPURINOL [Concomitant]
     Indication: DRUG USE FOR UNKNOWN INDICATION
     Route: 048
     Dates: start: 19980101, end: 20040416

REACTIONS (12)
  - BLOOD CREATININE INCREASED [None]
  - BLOOD UREA INCREASED [None]
  - BRADYCARDIA [None]
  - CARDIAC FAILURE [None]
  - CONDITION AGGRAVATED [None]
  - DEPRESSED LEVEL OF CONSCIOUSNESS [None]
  - DIALYSIS [None]
  - ELECTROCARDIOGRAM CHANGE [None]
  - FEMORAL NECK FRACTURE [None]
  - HYPERKALAEMIA [None]
  - MYOCARDIAL INFARCTION [None]
  - SHOCK [None]
